FAERS Safety Report 8303492-0 (Version None)
Quarter: 2012Q2

REPORT INFORMATION
  Report Type: 
  Country: None (occurrence: None)
  Receive Date: 20120418
  Receipt Date: 20120411
  Transmission Date: 20120825
  Serious: Yes (Hospitalization, Other)
  Sender: FDA-Public Use
  Company Number: 2011SP040438

PATIENT
  Age: 56 Year
  Sex: Female

DRUGS (10)
  1. RIBAVIRIN [Suspect]
     Dosage: QD ; QD ; 200 MG;QD
     Dates: start: 20080104, end: 20081003
  2. RIBAVIRIN [Suspect]
     Dosage: QD ; QD ; 200 MG;QD
     Dates: end: 20091007
  3. RIBAVIRIN [Suspect]
     Dosage: QD ; QD ; 200 MG;QD
     Dates: start: 20110817, end: 20120403
  4. VICTRELIS [Suspect]
     Indication: HEPATITIS C
     Dosage: 800 MG;TID;PO
     Route: 048
     Dates: start: 20110914
  5. PEG-INTRON [Suspect]
     Indication: HEPATITIS C
     Dosage: 0.4 MCG ; 0.3 MCG
     Dates: start: 20110817, end: 20120403
  6. PEG-INTRON [Suspect]
     Indication: HEPATITIS C
     Dosage: 0.4 MCG ; 0.3 MCG
     Dates: end: 20081007
  7. PEG-INTRON [Suspect]
     Indication: HEPATITIS C
     Dosage: 0.4 MCG ; 0.3 MCG
     Dates: start: 20080104, end: 20081003
  8. VICTRELIS [Suspect]
  9. PROCRIT [Concomitant]
  10. VICTRELIS [Suspect]

REACTIONS (14)
  - EPISTAXIS [None]
  - HEADACHE [None]
  - ANAEMIA [None]
  - DYSPNOEA [None]
  - DIABETES MELLITUS [None]
  - RASH [None]
  - WEIGHT DECREASED [None]
  - CAPSULE PHYSICAL ISSUE [None]
  - BLOOD PRESSURE DECREASED [None]
  - NAUSEA [None]
  - NASAL DISORDER [None]
  - DYSGEUSIA [None]
  - PRODUCT QUALITY ISSUE [None]
  - WHITE BLOOD CELL COUNT DECREASED [None]
